FAERS Safety Report 9146265 (Version 2)
Quarter: 2013Q1

REPORT INFORMATION
  Report Type: Spontaneous
  Country: US (occurrence: US)
  Receive Date: 20130307
  Receipt Date: 20130313
  Transmission Date: 20140127
  Serious: Yes (Death)
  Sender: FDA-Public Use
  Company Number: US-PFIZER INC-2013075968

PATIENT
  Age: 76 Year
  Sex: Male

DRUGS (2)
  1. VFEND [Suspect]
     Indication: BRONCHOPULMONARY ASPERGILLOSIS
     Dosage: 200 MG, EVERY 12 HOURS
  2. VFEND [Suspect]
     Indication: ASPERGILLUS INFECTION

REACTIONS (1)
  - Cardiac failure congestive [Fatal]
